FAERS Safety Report 22592897 (Version 1)
Quarter: 2023Q2

REPORT INFORMATION
  Report Type: Report from Study
  Country: US (occurrence: US)
  Receive Date: 20230613
  Receipt Date: 20230613
  Transmission Date: 20230721
  Serious: Yes (Hospitalization)
  Sender: FDA-Public Use
  Company Number: US-ABBVIE-5285799

PATIENT
  Age: 23 Year
  Sex: Male

DRUGS (1)
  1. HUMIRA [Suspect]
     Active Substance: ADALIMUMAB
     Indication: Colitis ulcerative
     Dosage: FORM STRENGTH: 40 MG
     Route: 058
     Dates: start: 20230324

REACTIONS (4)
  - Pharyngitis streptococcal [Unknown]
  - COVID-19 [Recovered/Resolved]
  - Pharyngeal swelling [Unknown]
  - Throat tightness [Unknown]

NARRATIVE: CASE EVENT DATE: 20230501
